FAERS Safety Report 4592841-5 (Version None)
Quarter: 2005Q1

REPORT INFORMATION
  Report Type: 
  Country: None (occurrence: None)
  Receive Date: 20050228
  Receipt Date: 20050104
  Transmission Date: 20050727
  Serious: Yes (Hospitalization)
  Sender: FDA-Public Use
  Company Number: FR-ROCHE-391349

PATIENT
  Age: 23 Year
  Sex: Male

DRUGS (13)
  1. MYCOPHENOLATE MOFETIL [Suspect]
     Route: 065
     Dates: start: 20040825, end: 20041005
  2. MYCOPHENOLATE MOFETIL [Suspect]
     Route: 065
     Dates: start: 20040721, end: 20040802
  3. MYCOPHENOLATE MOFETIL [Suspect]
     Dosage: TO ACHIEVE TARGET AUC.
     Route: 065
     Dates: start: 20040803, end: 20040824
  4. MYCOPHENOLATE MOFETIL [Suspect]
     Route: 065
     Dates: start: 20041006, end: 20041008
  5. MYCOPHENOLATE MOFETIL [Suspect]
     Route: 065
     Dates: start: 20041026, end: 20041102
  6. MYCOPHENOLATE MOFETIL [Suspect]
     Route: 065
     Dates: start: 20041103, end: 20041121
  7. MYCOPHENOLATE MOFETIL [Suspect]
     Route: 065
     Dates: start: 20041122
  8. BACTRIM [Suspect]
     Indication: ANTIBACTERIAL PROPHYLAXIS
     Route: 065
     Dates: start: 20040725, end: 20041005
  9. VALGANCICLOVIR [Suspect]
     Indication: ANTIVIRAL PROPHYLAXIS
     Route: 065
     Dates: start: 20040727, end: 20041005
  10. CYCLOSPORINE [Suspect]
     Dosage: ADJUSTED TO REACH PREDEFINED TARGET LEVELS.
     Route: 065
     Dates: start: 20040729
  11. CYCLOSPORINE [Suspect]
     Route: 065
     Dates: start: 20040723, end: 20040728
  12. METHYLPREDNISOLONE [Suspect]
     Dosage: TAPER ACCORDING TO LOCAL PROTOCOL.
     Route: 065
     Dates: start: 20040722, end: 20041214
  13. METHYLPREDNISOLONE [Suspect]
     Route: 065
     Dates: start: 20040721, end: 20040721

REACTIONS (1)
  - AGRANULOCYTOSIS [None]
